FAERS Safety Report 15839971 (Version 1)
Quarter: 2019Q1

REPORT INFORMATION
  Report Type: Spontaneous
  Country: ES (occurrence: ES)
  Receive Date: 20190117
  Receipt Date: 20190117
  Transmission Date: 20190417
  Serious: Yes (Hospitalization)
  Sender: FDA-Public Use
  Company Number: ES-MYLANLABS-2019M1003419

PATIENT
  Age: 37 Year
  Sex: Female
  Weight: 66 kg

DRUGS (1)
  1. CETIRIZINA MYLAN 10 MG COMPRIMIDOS RECUBIERTOS CON PEL?CULA EFG [Suspect]
     Active Substance: CETIRIZINE HYDROCHLORIDE
     Indication: SEASONAL ALLERGY
     Dosage: 10 MG, UNA PASTILLA
     Route: 048
     Dates: start: 20180624, end: 20180624

REACTIONS (1)
  - Vestibular neuronitis [Recovering/Resolving]

NARRATIVE: CASE EVENT DATE: 20180624
